FAERS Safety Report 4860696-7 (Version None)
Quarter: 2005Q4

REPORT INFORMATION
  Report Type: 
  Country: None (occurrence: None)
  Receive Date: 20051216
  Receipt Date: 20051129
  Transmission Date: 20060501
  Serious: Yes (Hospitalization, Other)
  Sender: FDA-Public Use
  Company Number: USA0508106423

PATIENT
  Age: 78 Year
  Sex: Female

DRUGS (2)
  1. FORTEO [Suspect]
     Indication: OSTEOPOROSIS
     Dosage: 20 UG, DAILY (1/D)
     Dates: start: 20050529
  2. FORTEO PEN (FORTEO PEN) [Concomitant]

REACTIONS (8)
  - BACK PAIN [None]
  - COMPRESSION FRACTURE [None]
  - MALAISE [None]
  - MUSCLE SPASMS [None]
  - MUSCULOSKELETAL CHEST PAIN [None]
  - PLEURAL EFFUSION [None]
  - PNEUMONIA [None]
  - SHOULDER PAIN [None]
